FAERS Safety Report 25388734 (Version 3)
Quarter: 2025Q3

REPORT INFORMATION
  Report Type: Report from Study
  Country: US (occurrence: US)
  Receive Date: 20250603
  Receipt Date: 20250910
  Transmission Date: 20251021
  Serious: Yes (Hospitalization, Other)
  Sender: TAKEDA
  Company Number: US-TAKEDA-2025TUS002923

PATIENT
  Age: 77 Year
  Sex: Female
  Weight: 44 kg

DRUGS (2)
  1. .ALPHA.1-PROTEINASE INHIBITOR HUMAN [Suspect]
     Active Substance: .ALPHA.1-PROTEINASE INHIBITOR HUMAN
     Indication: Alpha-1 antitrypsin deficiency
     Dosage: 60 MILLIGRAM/KILOGRAM, 1/WEEK
     Dates: start: 20240618
  2. .ALPHA.1-PROTEINASE INHIBITOR HUMAN [Suspect]
     Active Substance: .ALPHA.1-PROTEINASE INHIBITOR HUMAN

REACTIONS (11)
  - Pneumonia [Unknown]
  - Pulmonary thrombosis [Unknown]
  - Sputum increased [Not Recovered/Not Resolved]
  - Pyrexia [Recovered/Resolved]
  - Weight decreased [Unknown]
  - Decreased appetite [Unknown]
  - Oxygen saturation decreased [Unknown]
  - Lung disorder [Unknown]
  - Fatigue [Unknown]
  - Dyspnoea [Not Recovered/Not Resolved]
  - Cough [Not Recovered/Not Resolved]
